FAERS Safety Report 23286157 (Version 1)
Quarter: 2023Q4

REPORT INFORMATION
  Report Type: Other
  Country: CR (occurrence: CR)
  Receive Date: 20231212
  Receipt Date: 20231212
  Transmission Date: 20240110
  Serious: Yes (Death, Other)
  Sender: FDA-Public Use
  Company Number: CR-TOLMAR, INC.-23CR044835

PATIENT
  Sex: Male

DRUGS (4)
  1. ELIGARD [Suspect]
     Active Substance: LEUPROLIDE ACETATE
     Indication: Prostate cancer
     Dosage: 45 MILLIGRAM, Q 6 MONTH
     Route: 058
  2. ELIGARD [Suspect]
     Active Substance: LEUPROLIDE ACETATE
     Indication: Prostate cancer
     Dosage: UNK
  3. UNSPECIFIED INGREDIENT [Suspect]
     Active Substance: UNSPECIFIED INGREDIENT
     Indication: Cardiac disorder
     Dosage: UNK
  4. TEOPRIN [Concomitant]
     Indication: Prostatic specific antigen
     Dosage: 50 MILLIGRAM, QD

REACTIONS (4)
  - Haemorrhage [Fatal]
  - Renal disorder [Fatal]
  - Cardiac disorder [Fatal]
  - Drug ineffective [Unknown]
